FAERS Safety Report 12960828 (Version 1)
Quarter: 2016Q4

REPORT INFORMATION
  Report Type: Spontaneous
  Country: US (occurrence: US)
  Receive Date: 20161121
  Receipt Date: 20161121
  Transmission Date: 20170207
  Serious: No
  Sender: FDA-Public Use
  Company Number: US-OTSUKA-2016_019553

PATIENT
  Sex: Male

DRUGS (3)
  1. NUEDEXTA [Suspect]
     Active Substance: DEXTROMETHORPHAN HYDROBROMIDE\QUINIDINE SULFATE
     Indication: AUTISM SPECTRUM DISORDER
     Dosage: 1 DF (20 MG/10 MG), QD
     Route: 065
     Dates: start: 2016, end: 2016
  2. VISTARIL [Concomitant]
     Active Substance: HYDROXYZINE PAMOATE
     Indication: PRODUCT USED FOR UNKNOWN INDICATION
     Dosage: UNK, QD (AT NIGHT)
     Route: 065
  3. NUEDEXTA [Suspect]
     Active Substance: DEXTROMETHORPHAN HYDROBROMIDE\QUINIDINE SULFATE
     Indication: BRAIN INJURY
     Dosage: 2 DF (2 CAPSULES (20 MG/10 MG) TAKEN TOGETHER), QD (IN MORNING)
     Route: 065
     Dates: start: 2016

REACTIONS (5)
  - Drug administered to patient of inappropriate age [Unknown]
  - Off label use [Unknown]
  - Product container seal issue [Unknown]
  - Product quality issue [Unknown]
  - Therapeutic response unexpected [Unknown]

NARRATIVE: CASE EVENT DATE: 2016
